FAERS Safety Report 7615622-4 (Version None)
Quarter: 2011Q3

REPORT INFORMATION
  Report Type: 
  Country: None (occurrence: None)
  Receive Date: 20110711
  Receipt Date: 20110613
  Transmission Date: 20111222
  Serious: No
  Sender: FDA-Public Use
  Company Number: 14674071

PATIENT
  Age: 78 Year
  Sex: Male

DRUGS (5)
  1. ATORVASTATIN CALCIUM [Concomitant]
  2. PLACEBO [Suspect]
     Indication: THROMBOSIS PROPHYLAXIS
     Route: 048
     Dates: start: 20081218, end: 20090217
  3. WARFARIN SODIUM [Suspect]
     Indication: THROMBOSIS PROPHYLAXIS
     Dosage: 3.5 MILLIGRAM 1 DAY
     Route: 048
     Dates: start: 20081218, end: 20090217
  4. LOSARTAN POTASSIUM [Concomitant]
  5. NIFEDIPINE [Concomitant]

REACTIONS (3)
  - CONDITION AGGRAVATED [None]
  - EPISTAXIS [None]
  - ATRIAL FIBRILLATION [None]
